FAERS Safety Report 11008431 (Version 1)
Quarter: 2015Q2

REPORT INFORMATION
  Report Type: Spontaneous
  Country: GB (occurrence: GB)
  Receive Date: 20150410
  Receipt Date: 20150410
  Transmission Date: 20150821
  Serious: Yes (Death, Other)
  Sender: FDA-Public Use
  Company Number: GB-ASTRAZENECA-2015SE31343

PATIENT
  Age: 74 Year
  Sex: Female

DRUGS (1)
  1. SYMBICORT [Suspect]
     Active Substance: BUDESONIDE\FORMOTEROL FUMARATE DIHYDRATE
     Dosage: 400/12 , FREQUENCY UNKNOWN
     Route: 055

REACTIONS (7)
  - Pneumonia [Fatal]
  - Thinking abnormal [Unknown]
  - Overdose [Unknown]
  - Mental disorder [Unknown]
  - Abdominal pain [Unknown]
  - Encephalitis [Unknown]
  - Abnormal behaviour [Unknown]

NARRATIVE: CASE EVENT DATE: 20141011
